FAERS Safety Report 17679539 (Version 1)
Quarter: 2020Q2

REPORT INFORMATION
  Report Type: Report from Study
  Country: US (occurrence: US)
  Receive Date: 20200417
  Receipt Date: 20200417
  Transmission Date: 20200714
  Serious: Yes (Hospitalization, Other)
  Sender: FDA-Public Use
  Company Number: US-GLAXOSMITHKLINE-US2020TSO005517

PATIENT
  Age: 49 Year
  Sex: Female
  Weight: 85.71 kg

DRUGS (3)
  1. NIRAPARIB [Suspect]
     Active Substance: NIRAPARIB
     Dosage: 200 MG, QD
     Route: 048
     Dates: start: 20191218, end: 20200307
  2. NIRAPARIB [Suspect]
     Active Substance: NIRAPARIB
     Indication: OVARIAN CANCER
     Dosage: 200 MG, QD
     Route: 048
     Dates: start: 20191218
  3. COMPAZINE [Concomitant]
     Active Substance: PROCHLORPERAZINE MALEATE
     Dosage: UNK

REACTIONS (26)
  - Drug ineffective [Unknown]
  - Pollakiuria [Unknown]
  - Night sweats [Unknown]
  - Pruritus [Unknown]
  - Depression [Unknown]
  - Constipation [Unknown]
  - Dry skin [Unknown]
  - Dry mouth [Unknown]
  - Nocturia [Unknown]
  - Hypoaesthesia [Unknown]
  - Paraesthesia [Unknown]
  - Muscular weakness [Unknown]
  - Myalgia [Unknown]
  - Pulmonary thrombosis [Unknown]
  - Malaise [Unknown]
  - Alopecia [Unknown]
  - Photosensitivity reaction [Unknown]
  - Oedema peripheral [Unknown]
  - Adverse drug reaction [Unknown]
  - Hypertension [Unknown]
  - Insomnia [Unknown]
  - Fatigue [Unknown]
  - Weight fluctuation [Unknown]
  - Taste disorder [Unknown]
  - Hot flush [Unknown]
  - Anxiety [Unknown]

NARRATIVE: CASE EVENT DATE: 20200115
